FAERS Safety Report 22613011 (Version 3)
Quarter: 2023Q2

REPORT INFORMATION
  Report Type: Report from Study
  Country: DE (occurrence: DE)
  Receive Date: 20230618
  Receipt Date: 20230621
  Transmission Date: 20230721
  Serious: Yes (Life-Threatening, Other)
  Sender: FDA-Public Use
  Company Number: None

PATIENT
  Age: 86 Year
  Sex: Female
  Weight: 56 kg

DRUGS (44)
  1. ASPIRIN [Suspect]
     Active Substance: ASPIRIN
     Dosage: 100 MG, QD
     Route: 048
     Dates: start: 20000828, end: 20000831
  2. ASPIRIN [Suspect]
     Active Substance: ASPIRIN
     Indication: Coagulopathy
     Dosage: 100 MG, QD
     Route: 048
     Dates: start: 20000914, end: 20000917
  3. ASPIRIN [Suspect]
     Active Substance: ASPIRIN
     Indication: Coagulopathy
     Dosage: 100 MG, QD
     Route: 050
     Dates: start: 20000914, end: 20000917
  4. CLONIDINE [Suspect]
     Active Substance: CLONIDINE
     Indication: Hypertension
  5. CLONIDINE [Suspect]
     Active Substance: CLONIDINE
     Indication: Coronary artery disease
     Route: 050
     Dates: start: 20000913, end: 20000913
  6. CLONIDINE [Suspect]
     Active Substance: CLONIDINE
     Indication: Coronary artery disease
     Route: 040
     Dates: start: 20000913, end: 20000913
  7. PREDNISOLONE [Suspect]
     Active Substance: PREDNISOLONE
     Dosage: 40 MG, QD
     Route: 050
  8. PREDNISOLONE [Suspect]
     Active Substance: PREDNISOLONE
     Dosage: 50 MILLIGRAM, QD
     Route: 050
  9. PREDNISOLONE [Suspect]
     Active Substance: PREDNISOLONE
     Dosage: 60 MILLIGRAM, QD
     Route: 050
  10. PREDNISOLONE [Suspect]
     Active Substance: PREDNISOLONE
     Indication: Dermatitis bullous
     Dosage: 80 MG, QD
     Route: 050
  11. PREDNISOLONE [Suspect]
     Active Substance: PREDNISOLONE
     Indication: Dermatitis bullous
     Dosage: UNK
     Route: 050
     Dates: start: 20000820, end: 20000917
  12. DIAZEPAM [Suspect]
     Active Substance: DIAZEPAM
     Indication: Sedation
     Dosage: UNK
     Route: 042
     Dates: start: 20000913, end: 20000913
  13. FENTANYL [Suspect]
     Active Substance: FENTANYL
     Indication: Pain
     Dosage: 1 DOSAGE FORM
     Route: 050
     Dates: start: 20000820, end: 20000916
  14. FENTANYL [Suspect]
     Active Substance: FENTANYL
     Dosage: 50 MICROGRAM, QH 50 MCG, MICROGRAMS PER INHALATION, 72 - EVERY HOUR
     Route: 050
  15. FENTANYL [Suspect]
     Active Substance: FENTANYL
     Dosage: 125 MICROGRAM, QH 125 MICROGRAMS PER INHALATION
     Route: 050
  16. FENTANYL [Suspect]
     Active Substance: FENTANYL
     Dosage: 150 MICROGRAM, QH (150 MICROGRAMS PER INHALATION, 72 - EVERY HOUR)
     Route: 050
  17. GLYBURIDE [Suspect]
     Active Substance: GLYBURIDE
     Indication: Diabetes mellitus
     Dosage: 3 DOSAGE FORM
     Route: 048
     Dates: start: 20000820, end: 20000917
  18. FRAGMIN [Suspect]
     Active Substance: DALTEPARIN SODIUM
     Indication: Thrombosis prophylaxis
  19. FRAGMIN [Suspect]
     Active Substance: DALTEPARIN SODIUM
     Indication: Coagulopathy
     Dosage: UNK
     Route: 050
     Dates: start: 20000820, end: 20000917
  20. INSULIN NOS [Suspect]
     Active Substance: INSULIN NOS
     Dosage: UNK (SUBCUTANEOUS EXCEPT ON 13 SEP 2000 WHEN GIVEN INTRAVENOUSLY)
     Route: 058
     Dates: start: 20000820, end: 20000917
  21. ISOSORBIDE MONONITRATE [Suspect]
     Active Substance: ISOSORBIDE MONONITRATE
     Indication: Angina pectoris
     Dosage: 1 DOSAGE FORM, QD
     Route: 048
     Dates: start: 20000820, end: 20000917
  22. LORMETAZEPAM [Suspect]
     Active Substance: LORMETAZEPAM
     Indication: Sedation
     Dosage: 2 DOSAGE FORM, QD (1 DOSE DAILY ()SUSPENSION AEROSOL)
     Route: 048
     Dates: start: 20000913, end: 20000913
  23. NOREPINEPHRINE [Suspect]
     Active Substance: NOREPINEPHRINE
     Indication: Coronary artery disease
     Route: 040
     Dates: start: 20000913, end: 20000913
  24. DIPYRONE [Suspect]
     Active Substance: DIPYRONE
     Indication: Pain
     Dosage: 20 GTT DROPS, QD (1 DOSE DAILY)?PREVIOUSLY THE INGREDIENT CODED AS METAMIZOLE SODIUM
     Route: 048
     Dates: start: 20000820, end: 20000917
  25. INSULIN NOS [Suspect]
     Active Substance: INSULIN NOS
     Indication: Diabetes mellitus
     Dosage: UNK (SUBCUTANEOUS EXCEPT ON 13 SEP 2000 WHEN GIVEN INTRAVENOUSLY)
     Route: 050
     Dates: start: 20000913, end: 20000913
  26. ESTRIOL [Suspect]
     Active Substance: ESTRIOL
     Indication: Vulvovaginal disorder
     Dosage: 1 DOSAGE FORM, QD (1 DF, 1 DOSE DAILY)?PREVIOUSLY INGREDIENT THAT WAS CODED IS ESTRIOL SUCCINATE
     Route: 067
     Dates: start: 20000820, end: 20000906
  27. PLAVIX [Suspect]
     Active Substance: CLOPIDOGREL BISULFATE
     Indication: Coagulopathy
  28. CLEMASTINE FUMARATE [Suspect]
     Active Substance: CLEMASTINE FUMARATE
     Indication: Pemphigoid
     Dosage: 4 DOSAGE FORM?PREVIOUSLY INGREDIENT THAT WAS CODED IS CLEMASTINE OR CLEMASTINE FUMARATE
     Route: 048
     Dates: start: 20000820, end: 20000828
  29. MOLSIDOMINE [Suspect]
     Active Substance: MOLSIDOMINE
     Indication: Coronary artery disease
     Dosage: 8 MG, QD
     Route: 050
     Dates: start: 20000820, end: 20000914
  30. TORSEMIDE [Suspect]
     Active Substance: TORSEMIDE
     Indication: Cardiac failure
     Dosage: 5 MILLIGRAM, QD (5 MG, 1 DOSE DAILY)
     Route: 048
     Dates: start: 20000820, end: 20000917
  31. VIOXX [Suspect]
     Active Substance: ROFECOXIB
     Indication: Rheumatic disorder
     Dosage: 25 MILLIGRAM, QD (25 MG, 1 DOSE DAILY)
     Route: 048
     Dates: start: 20000907, end: 20000917
  32. XYLOCAINE [Suspect]
     Active Substance: LIDOCAINE HYDROCHLORIDE
     Indication: Local anaesthesia
     Dosage: UNK
     Route: 058
     Dates: start: 20000913, end: 20000913
  33. PREDNISONE [Concomitant]
     Active Substance: PREDNISONE
     Indication: Dermatitis bullous
     Route: 048
     Dates: start: 20000820, end: 20000917
  34. OMEPRAZOLE MAGNESIUM [Concomitant]
     Active Substance: OMEPRAZOLE MAGNESIUM
     Indication: Prophylaxis against gastrointestinal ulcer
     Dosage: 20 MG (DAILY DOSE), , ORAL
     Route: 048
     Dates: start: 20000820, end: 20000917
  35. DEXTROSE [Concomitant]
     Active Substance: DEXTROSE\DEXTROSE MONOHYDRATE
     Indication: Cardiovascular disorder
     Route: 040
     Dates: start: 20000913, end: 20000913
  36. RINGERS SOLUTION [Concomitant]
     Active Substance: CALCIUM CHLORIDE\POTASSIUM CHLORIDE\SODIUM CHLORIDE
     Indication: Electrolyte depletion
     Route: 040
     Dates: start: 20000913, end: 20000914
  37. COTRIM [Concomitant]
     Active Substance: SULFAMETHOXAZOLE\TRIMETHOPRIM
     Indication: Urinary tract infection
     Dosage: 1 DOSAGE FORM, QD (1 DF, 1 DOSE DAILY) IN THE INITIAL CASE THE ACTIVE COMPONENTS WERE CODED SEPAR...
     Route: 048
     Dates: start: 20000916, end: 20000917
  38. CALCIUM BRAUSETABLETTEN [Concomitant]
     Indication: Osteoporosis
     Route: 048
     Dates: start: 20000820, end: 20000917
  39. FENTANYL [Concomitant]
     Active Substance: FENTANYL
     Indication: Pain
     Route: 062
     Dates: start: 20000820, end: 20000916
  40. CORVATON RETARD (MOLSIDOMINE) [Concomitant]
     Indication: Coronary artery disease
     Dosage: 1 DOSAGE FORM, QD (1 DF, 1 DOSE DAILY)
     Route: 048
     Dates: start: 20000820, end: 20000914
  41. OMEPRAZOLE [Suspect]
     Active Substance: OMEPRAZOLE
     Indication: Prophylaxis against gastrointestinal ulcer
     Dosage: 20 MG, QD
     Route: 050
     Dates: start: 20000820, end: 20000917
  42. PLAVIX [Suspect]
     Active Substance: CLOPIDOGREL BISULFATE
     Indication: Thrombosis prophylaxis
     Dosage: 75 MILLIGRAM, QD (75 MG, 1 DOSE DAILY)
     Route: 048
     Dates: start: 20000913, end: 20000917
  43. CLEMASTINE FUMARATE [Suspect]
     Active Substance: CLEMASTINE FUMARATE
     Dosage: 2 DOSAGE FORM, QD (2DF, QD)
     Route: 050
     Dates: start: 20000820, end: 20000828
  44. NOREPINEPHRINE [Suspect]
     Active Substance: NOREPINEPHRINE
     Indication: Coronary artery disease
     Dosage: UNK
     Route: 042
     Dates: start: 20000913, end: 20000913

REACTIONS (6)
  - Blister [Recovered/Resolved]
  - Erythema [Recovered/Resolved]
  - Mucosal erosion [Recovered/Resolved]
  - Toxic epidermal necrolysis [Recovered/Resolved]
  - Mouth ulceration [Recovered/Resolved]
  - Conjunctivitis [Recovered/Resolved]

NARRATIVE: CASE EVENT DATE: 20000916
